FAERS Safety Report 24453122 (Version 2)
Quarter: 2024Q4

REPORT INFORMATION
  Report Type: Report from Study
  Country: US (occurrence: US)
  Receive Date: 20241017
  Receipt Date: 20241018
  Transmission Date: 20250114
  Serious: No
  Sender: ROCHE
  Company Number: US-ROCHE-3068475

PATIENT
  Age: 51 Year
  Sex: Female

DRUGS (2)
  1. RITUXAN [Suspect]
     Active Substance: RITUXIMAB
     Indication: Demyelination
     Dosage: THEN 600 MG EVERY 6 MONTH, DATE OF TREATMENT: 14/JUN/2019, 28/JUN/2019, 30/DEC/2019, 29/JUN/2020, 28
     Route: 041
  2. RITUXAN [Suspect]
     Active Substance: RITUXIMAB
     Indication: Neuromyelitis optica spectrum disorder

REACTIONS (2)
  - Off label use [Unknown]
  - No adverse event [Unknown]
